FAERS Safety Report 14957155 (Version 1)
Quarter: 2018Q2

REPORT INFORMATION
  Report Type: Not Available
  Country: CZ (occurrence: CZ)
  Receive Date: 20180531
  Receipt Date: 20180531
  Transmission Date: 20180711
  Serious: Yes (Other)
  Sender: FDA-Public Use
  Company Number: CZ-SYNTHON BV-NL01PV18_46959

PATIENT
  Age: 97 Year
  Sex: Male

DRUGS (1)
  1. TAMSULOSIN HCL SANDOZ [Suspect]
     Active Substance: TAMSULOSIN HYDROCHLORIDE
     Indication: PROSTATE CANCER
     Dosage: UNK

REACTIONS (1)
  - Cataract [Unknown]
